FAERS Safety Report 21447600 (Version 4)
Quarter: 2022Q4

REPORT INFORMATION
  Report Type: Spontaneous
  Country: US (occurrence: US)
  Receive Date: 20221012
  Receipt Date: 20221117
  Transmission Date: 20230113
  Serious: Yes (Disabling)
  Sender: FDA-Public Use
  Company Number: US-PFIZER INC-202200804890

PATIENT
  Age: 65 Year
  Sex: Female
  Weight: 77.56 kg

DRUGS (1)
  1. PREMARIN [Suspect]
     Active Substance: ESTROGENS, CONJUGATED
     Indication: Dyspareunia
     Dosage: UNK
     Route: 067

REACTIONS (3)
  - Cardiac disorder [Unknown]
  - Tooth extraction [Unknown]
  - Fall [Unknown]
